FAERS Safety Report 8223449-8 (Version None)
Quarter: 2012Q1

REPORT INFORMATION
  Report Type: 
  Country: None (occurrence: None)
  Receive Date: 20120321
  Receipt Date: 20120313
  Transmission Date: 20120608
  Serious: Yes (Other)
  Sender: FDA-Public Use
  Company Number: US-BAYER-2011-111910

PATIENT
  Age: 20 Year
  Sex: Female
  Weight: 54 kg

DRUGS (2)
  1. YAZ [Suspect]
     Dosage: UNK
     Dates: start: 20080801, end: 20090301
  2. IBUPROFEN [Concomitant]
     Dosage: UNK UNK, QD

REACTIONS (9)
  - INJURY [None]
  - PAIN [None]
  - EMOTIONAL DISTRESS [None]
  - BILIARY DYSKINESIA [None]
  - ANXIETY [None]
  - GENERAL PHYSICAL HEALTH DETERIORATION [None]
  - CHOLECYSTITIS CHRONIC [None]
  - GALLBLADDER INJURY [None]
  - ANHEDONIA [None]
